FAERS Safety Report 13587854 (Version 15)
Quarter: 2020Q3

REPORT INFORMATION
  Report Type: Report from Study
  Country: None (occurrence: NL)
  Receive Date: 20170527
  Receipt Date: 20200901
  Transmission Date: 20201102
  Serious: Yes (Hospitalization, Other)
  Sender: FDA-Public Use
  Company Number: NL-ABBVIE-17P-114-1973894-00

PATIENT
  Age: 69 Year
  Sex: Male
  Weight: 78 kg

DRUGS (10)
  1. DUODOPA [Suspect]
     Active Substance: CARBIDOPA\LEVODOPA
     Dosage: MD: 7.5ML, CD: 4.1ML, ED: 1ML,?NIGHT DOSE: 2.2ML.D: 0.0 , CND: 2.2, END: 0.0
     Route: 050
  2. MOVICOLON [Concomitant]
     Active Substance: POLYETHYLENE GLYCOL 3350\POTASSIUM CHLORIDE\SODIUM BICARBONATE\SODIUM CHLORIDE
     Indication: ABNORMAL FAECES
  3. DUODOPA [Suspect]
     Active Substance: CARBIDOPA\LEVODOPA
     Dosage: MD: 8.5 ML; CD: 4.3 ML/H; ED: 1.0 ML, REMAINS AT 24 HOURS
     Route: 050
  4. SILVER NITRATE. [Concomitant]
     Active Substance: SILVER NITRATE
     Indication: FIBROMA
  5. DUODOPA [Suspect]
     Active Substance: CARBIDOPA\LEVODOPA
     Dosage: MD: 7.5, CD: 4.1, ED: 1.0, CND: 2.2, END: 0.0, 24 HOUR ADMINISTRATION
     Route: 050
  6. MACROGOL [Concomitant]
     Active Substance: POLYETHYLENE GLYCOLS
     Indication: ABNORMAL FAECES
     Dosage: 0.5 SACHET
  7. LAXANS [Concomitant]
     Indication: ABNORMAL FAECES
  8. RIVOTRIL [Concomitant]
     Active Substance: CLONAZEPAM
     Indication: SLEEP DISORDER THERAPY
     Route: 048
     Dates: start: 20200201
  9. DUODOPA [Suspect]
     Active Substance: CARBIDOPA\LEVODOPA
     Dosage: MD: 7.5ML, CD4.1ML, ED: 1ML, ND: 2.2ML.D: 0.0,
     Route: 050
  10. DUODOPA [Suspect]
     Active Substance: CARBIDOPA\LEVODOPA
     Indication: PARKINSON^S DISEASE
     Dosage: MD: 8, CD: 4, ED: 1,REMAINS AT 24 HOURS
     Route: 050
     Dates: start: 20130903

REACTIONS (47)
  - Muscle rigidity [Not Recovered/Not Resolved]
  - Hypophagia [Not Recovered/Not Resolved]
  - Inflammation [Not Recovered/Not Resolved]
  - Freezing phenomenon [Recovered/Resolved]
  - Fear [Not Recovered/Not Resolved]
  - Freezing phenomenon [Not Recovered/Not Resolved]
  - Fistula [Not Recovered/Not Resolved]
  - Weight decreased [Recovered/Resolved]
  - Disturbance in attention [Not Recovered/Not Resolved]
  - Confusional state [Not Recovered/Not Resolved]
  - Stoma site extravasation [Not Recovered/Not Resolved]
  - Gastrointestinal stoma complication [Recovered/Resolved]
  - Salivary hypersecretion [Not Recovered/Not Resolved]
  - Trichotillomania [Not Recovered/Not Resolved]
  - Fatigue [Not Recovered/Not Resolved]
  - Device occlusion [Unknown]
  - Restlessness [Not Recovered/Not Resolved]
  - Mobility decreased [Not Recovered/Not Resolved]
  - Impaired self-care [Not Recovered/Not Resolved]
  - Nocturnal fear [Unknown]
  - Intentional device use issue [Not Recovered/Not Resolved]
  - Fibroma [Recovered/Resolved]
  - Dementia [Not Recovered/Not Resolved]
  - Stoma site abscess [Not Recovered/Not Resolved]
  - Hallucination [Not Recovered/Not Resolved]
  - General physical health deterioration [Not Recovered/Not Resolved]
  - Nasopharyngitis [Not Recovered/Not Resolved]
  - Influenza like illness [Not Recovered/Not Resolved]
  - Communication disorder [Not Recovered/Not Resolved]
  - Stoma site discomfort [Recovered/Resolved]
  - Unevaluable event [Recovered/Resolved]
  - Stoma site inflammation [Recovered/Resolved]
  - Somnolence [Not Recovered/Not Resolved]
  - Memory impairment [Not Recovered/Not Resolved]
  - Obsessive-compulsive disorder [Not Recovered/Not Resolved]
  - Cognitive disorder [Not Recovered/Not Resolved]
  - Speech disorder [Not Recovered/Not Resolved]
  - Infrequent bowel movements [Not Recovered/Not Resolved]
  - Stoma site discharge [Recovered/Resolved]
  - Gait disturbance [Not Recovered/Not Resolved]
  - Frustration tolerance decreased [Not Recovered/Not Resolved]
  - Fluid intake reduced [Not Recovered/Not Resolved]
  - Extra dose administered [Not Recovered/Not Resolved]
  - Weight decreased [Recovered/Resolved]
  - Stoma site erythema [Recovering/Resolving]
  - Stoma site reaction [Recovered/Resolved]
  - Agitation [Not Recovered/Not Resolved]

NARRATIVE: CASE EVENT DATE: 20170515
